FAERS Safety Report 24908068 (Version 2)
Quarter: 2025Q1

REPORT INFORMATION
  Report Type: Report from Study
  Country: CA (occurrence: CA)
  Receive Date: 20250131
  Receipt Date: 20250131
  Transmission Date: 20250408
  Serious: Yes (Hospitalization, Other)
  Sender: ROCHE
  Company Number: CA-ROCHE-10000130943

PATIENT
  Age: 54 Year
  Sex: Female

DRUGS (1)
  1. OCREVUS [Suspect]
     Active Substance: OCRELIZUMAB
     Indication: Primary progressive multiple sclerosis
     Dosage: 300 MG AT DAY 0 AND 14, THEN 600 MG EVERY 6 MONTHS
     Route: 040
     Dates: start: 20240621

REACTIONS (5)
  - Arthropathy [Recovered/Resolved]
  - Fall [Unknown]
  - Arthralgia [Recovering/Resolving]
  - Muscular weakness [Unknown]
  - Suture removal [Unknown]

NARRATIVE: CASE EVENT DATE: 20241027
